FAERS Safety Report 4705204-6 (Version None)
Quarter: 2005Q2

REPORT INFORMATION
  Report Type: 
  Country: None (occurrence: None)
  Receive Date: 20050628
  Receipt Date: 20050613
  Transmission Date: 20051028
  Serious: No
  Sender: FDA-Public Use
  Company Number: 11479

PATIENT
  Age: 10 Year
  Sex: Male

DRUGS (1)
  1. METHOTREXATE [Suspect]
     Indication: BONE SARCOMA

REACTIONS (7)
  - ASPARTATE AMINOTRANSFERASE INCREASED [None]
  - DRUG CLEARANCE DECREASED [None]
  - ENZYME ABNORMALITY [None]
  - HYPOREFLEXIA [None]
  - NYSTAGMUS [None]
  - SOMNOLENCE [None]
  - URINARY INCONTINENCE [None]
